FAERS Safety Report 12679294 (Version 2)
Quarter: 2016Q3

REPORT INFORMATION
  Report Type: Report from Study
  Country: US (occurrence: US)
  Receive Date: 20160824
  Receipt Date: 20160921
  Transmission Date: 20161109
  Serious: Yes (Death, Other)
  Sender: FDA-Public Use
  Company Number: US-BIOGEN-2016BI00281392

PATIENT
  Sex: Male

DRUGS (1)
  1. TECFIDERA [Suspect]
     Active Substance: DIMETHYL FUMARATE
     Indication: MULTIPLE SCLEROSIS
     Dosage: MAINTENANCE DOSE
     Route: 048
     Dates: start: 201502

REACTIONS (5)
  - Cardiomyopathy [Fatal]
  - Chemotherapy [Fatal]
  - Multiple sclerosis [Unknown]
  - Diabetes mellitus [Unknown]
  - Atrial fibrillation [Unknown]
